FAERS Safety Report 16760352 (Version 1)
Quarter: 2019Q3

REPORT INFORMATION
  Report Type: Spontaneous
  Country: DE (occurrence: DE)
  Receive Date: 20190830
  Receipt Date: 20190830
  Transmission Date: 20191005
  Serious: Yes (Other)
  Sender: FDA-Public Use
  Company Number: DE-ASTELLAS-2019US034476

PATIENT
  Sex: Male

DRUGS (2)
  1. XTANDI [Suspect]
     Active Substance: ENZALUTAMIDE
     Indication: PROSTATE CANCER
     Dosage: 160 MG, ONCE DAILY (IN THE EVENING)
     Route: 048
     Dates: start: 20190513
  2. TRENANTONE [Concomitant]
     Active Substance: LEUPROLIDE ACETATE
     Indication: PRODUCT USED FOR UNKNOWN INDICATION
     Dosage: UNK UNK, EVERY 3 MONTHS
     Route: 065

REACTIONS (5)
  - Hypoacusis [Unknown]
  - Abnormal behaviour [Recovered/Resolved]
  - Muscle spasms [Recovered/Resolved]
  - Cerebral disorder [Recovered/Resolved]
  - Dyskinesia [Recovered/Resolved]
